FAERS Safety Report 9609226 (Version 1)
Quarter: 2013Q4

REPORT INFORMATION
  Report Type: Spontaneous
  Country: US (occurrence: None)
  Receive Date: 20131007
  Receipt Date: 20131007
  Transmission Date: 20140711
  Serious: Yes (Other)
  Sender: FDA-Public Use
  Company Number: None

PATIENT
  Age: 71 Year
  Sex: Female
  Weight: 49.9 kg

DRUGS (1)
  1. FENTANYL TRANSDERMAL PATCH [Suspect]
     Indication: DRUG THERAPY
     Dates: start: 20130822, end: 20131004

REACTIONS (3)
  - Myoclonus [None]
  - Muscle tightness [None]
  - Dyskinesia [None]
